FAERS Safety Report 23785884 (Version 1)
Quarter: 2024Q2

REPORT INFORMATION
  Report Type: Spontaneous
  Country: AR (occurrence: AR)
  Receive Date: 20240425
  Receipt Date: 20240425
  Transmission Date: 20240716
  Serious: Yes (Life-Threatening, Hospitalization)
  Sender: FDA-Public Use
  Company Number: AR-STRIDES ARCOLAB LIMITED-2024SP004705

PATIENT
  Age: 13 Year
  Sex: Female

DRUGS (1)
  1. MINOCYCLINE [Suspect]
     Active Substance: MINOCYCLINE HYDROCHLORIDE
     Indication: Acne
     Dosage: UNK
     Route: 065

REACTIONS (6)
  - Septic shock [Unknown]
  - Streptococcal infection [Unknown]
  - Tubulointerstitial nephritis [Unknown]
  - Drug reaction with eosinophilia and systemic symptoms [Unknown]
  - Anaemia [Unknown]
  - Acute kidney injury [Unknown]
